FAERS Safety Report 9097573 (Version 1)
Quarter: 2013Q1

REPORT INFORMATION
  Report Type: Report from Study
  Country: US (occurrence: US)
  Receive Date: 20130212
  Receipt Date: 20130212
  Transmission Date: 20140127
  Serious: No
  Sender: FDA-Public Use
  Company Number: US-VERTEX PHARMACEUTICALS INC.-2013-001896

PATIENT
  Age: 41 Year
  Sex: Female

DRUGS (3)
  1. VX-950 (TELAPREVIR) [Suspect]
     Indication: HEPATITIS C
     Dosage: UNK
     Route: 048
     Dates: start: 20121221, end: 20121227
  2. RIBAVIRIN [Suspect]
     Indication: HEPATITIS C
     Dosage: UNK
     Dates: start: 20121221, end: 20121227
  3. PEGASYS [Suspect]
     Indication: HEPATITIS C
     Dosage: UNK
     Dates: start: 20121221, end: 20121227

REACTIONS (4)
  - Skin burning sensation [Recovered/Resolved]
  - Rash [Recovered/Resolved]
  - Haemorrhoids [Recovered/Resolved]
  - Anorectal discomfort [Recovered/Resolved]
